FAERS Safety Report 15561415 (Version 1)
Quarter: 2018Q4

REPORT INFORMATION
  Report Type: Spontaneous
  Country: US (occurrence: US)
  Receive Date: 20181023
  Receipt Date: 20181023
  Transmission Date: 20190205
  Serious: Yes (Hospitalization)
  Sender: FDA-Public Use
  Company Number: None

PATIENT
  Age: 57 Year
  Sex: Female

DRUGS (6)
  1. METHOTREXATE 50/2ML MDV [Suspect]
     Active Substance: METHOTREXATE
     Indication: RHEUMATOID ARTHRITIS
     Route: 030
     Dates: start: 20171018
  2. ENBREL [Suspect]
     Active Substance: ETANERCEPT
     Indication: RHEUMATOID ARTHRITIS
     Route: 058
     Dates: start: 20171018
  3. FOLIC ACID. [Concomitant]
     Active Substance: FOLIC ACID
  4. TRAMADOL. [Concomitant]
     Active Substance: TRAMADOL
  5. MELOXICAM. [Concomitant]
     Active Substance: MELOXICAM
  6. NEURONTIN [Concomitant]
     Active Substance: GABAPENTIN

REACTIONS (2)
  - Product dose omission [None]
  - Neck surgery [None]

NARRATIVE: CASE EVENT DATE: 20180924
